FAERS Safety Report 23323762 (Version 1)
Quarter: 2023Q4

REPORT INFORMATION
  Report Type: Spontaneous
  Country: JP (occurrence: JP)
  Receive Date: 20231220
  Receipt Date: 20231220
  Transmission Date: 20240110
  Serious: Yes (Other)
  Sender: FDA-Public Use
  Company Number: JP-MTPC-MTPC2023-0029743

PATIENT
  Age: 52 Year
  Sex: Female

DRUGS (2)
  1. REMICADE [Suspect]
     Active Substance: INFLIXIMAB
     Indication: Behcet^s syndrome
     Route: 065
  2. AZATHIOPRINE [Suspect]
     Active Substance: AZATHIOPRINE
     Indication: Behcet^s syndrome
     Route: 065

REACTIONS (7)
  - Septic pulmonary embolism [Unknown]
  - Hepatosplenic abscess [Unknown]
  - Splenic vein thrombosis [Unknown]
  - Nocardia sepsis [Unknown]
  - Septic shock [Unknown]
  - Pancreatitis [Unknown]
  - Off label use [Unknown]
